FAERS Safety Report 8290425-9 (Version None)
Quarter: 2012Q2

REPORT INFORMATION
  Report Type: 
  Country: None (occurrence: None)
  Receive Date: 20120412
  Receipt Date: 20120412
  Transmission Date: 20120825
  Serious: Yes (Life-Threatening, Other)
  Sender: FDA-Public Use
  Company Number: None

PATIENT
  Sex: Female
  Weight: 125.1928 kg

DRUGS (1)
  1. BYSTOLIC [Suspect]
     Indication: HYPERTENSION
     Dosage: 1 TABLET 10MG 1 TIME A DAY BY MOUTH
     Route: 048
     Dates: start: 20101011, end: 20120330

REACTIONS (16)
  - MUSCLE SPASMS [None]
  - ALOPECIA [None]
  - BLISTER [None]
  - FATIGUE [None]
  - DRY EYE [None]
  - ABDOMINAL PAIN UPPER [None]
  - VERTIGO [None]
  - DRY SKIN [None]
  - INSOMNIA [None]
  - PYREXIA [None]
  - HAIR TEXTURE ABNORMAL [None]
  - TRICHORRHEXIS [None]
  - PAIN [None]
  - DIARRHOEA [None]
  - BACK PAIN [None]
  - WEIGHT INCREASED [None]
